FAERS Safety Report 4339816-9 (Version None)
Quarter: 2004Q2

REPORT INFORMATION
  Report Type: 
  Country: None (occurrence: None)
  Receive Date: 20040414
  Receipt Date: 20040414
  Transmission Date: 20050107
  Serious: Yes (Other)
  Sender: FDA-Public Use
  Company Number: None

PATIENT
  Age: 20 Year
  Sex: Female
  Weight: 54.4316 kg

DRUGS (2)
  1. LAMICTAL [Suspect]
     Indication: BIPOLAR DISORDER
     Dosage: 25 MG QHS ORAL
     Dates: start: 20040406, end: 20040406
  2. PROVIGIL [Concomitant]

REACTIONS (5)
  - AMNESIA [None]
  - CONTUSION [None]
  - EXCORIATION [None]
  - LOSS OF CONSCIOUSNESS [None]
  - TREMOR [None]
